FAERS Safety Report 20411111 (Version 1)
Quarter: 2022Q1

REPORT INFORMATION
  Report Type: Spontaneous
  Country: US (occurrence: None)
  Receive Date: 20220201
  Receipt Date: 20220201
  Transmission Date: 20220423
  Serious: Yes (Hospitalization, Other)
  Sender: FDA-Public Use
  Company Number: None

PATIENT
  Age: 79 Year
  Sex: Male
  Weight: 79 kg

DRUGS (1)
  1. BARICITINIB [Suspect]
     Active Substance: BARICITINIB
     Dosage: FREQUENCY : DAILY;?
     Route: 048
     Dates: start: 20220116, end: 20220117

REACTIONS (8)
  - Confusional state [None]
  - Sedation [None]
  - Tachypnoea [None]
  - Hypotension [None]
  - Tachycardia [None]
  - Acute respiratory failure [None]
  - Lethargy [None]
  - Sepsis [None]

NARRATIVE: CASE EVENT DATE: 20220118
